FAERS Safety Report 25335387 (Version 2)
Quarter: 2025Q2

REPORT INFORMATION
  Report Type: Spontaneous
  Country: FR (occurrence: FR)
  Receive Date: 20250520
  Receipt Date: 20250614
  Transmission Date: 20250716
  Serious: Yes (Hospitalization, Other)
  Sender: AUROBINDO
  Company Number: FR-MLMSERVICE-20250502-PI490070-00203-4

PATIENT
  Age: 79 Year
  Sex: Male
  Weight: 73 kg

DRUGS (10)
  1. METFORMIN\VILDAGLIPTIN [Interacting]
     Active Substance: METFORMIN\VILDAGLIPTIN
     Indication: Diabetes mellitus
     Dosage: 1 DOSAGE FORM, TWO TIMES A DAY, ONE TABLET MORNING AND EVENING
     Route: 065
  2. LISINOPRIL [Interacting]
     Active Substance: LISINOPRIL
     Indication: Product used for unknown indication
     Dosage: ONE TABLET IN THE MORNING
     Route: 065
  3. RACECADOTRIL [Suspect]
     Active Substance: RACECADOTRIL
     Indication: Diarrhoea
     Route: 065
  4. ASPIRIN [Suspect]
     Active Substance: ASPIRIN
     Indication: Product used for unknown indication
     Dosage: ONE SACHET AT NOON
     Route: 065
  5. BISOPROLOL [Concomitant]
     Active Substance: BISOPROLOL
     Indication: Product used for unknown indication
     Dosage: ONE TABLET (TAB) IN THE MORNING
     Route: 065
  6. LERCANIDIPINE [Concomitant]
     Active Substance: LERCANIDIPINE
     Indication: Product used for unknown indication
     Dosage: ONE TABLET IN THE EVENING, 30 MINUTES BEFORE DINNER
     Route: 065
  7. FUROSEMIDE [Concomitant]
     Active Substance: FUROSEMIDE
     Indication: Product used for unknown indication
     Dosage: ONE TABLET IN THE MORNING
     Route: 065
  8. SIMVASTATIN [Concomitant]
     Active Substance: SIMVASTATIN
     Indication: Product used for unknown indication
     Dosage: ONE TABLET IN THE EVENING
     Route: 065
  9. CHOLECALCIFEROL [Concomitant]
     Active Substance: CHOLECALCIFEROL
     Indication: Product used for unknown indication
     Route: 065
  10. POLYETHYLENE GLYCOLS [Concomitant]
     Active Substance: POLYETHYLENE GLYCOLS
     Indication: Product used for unknown indication
     Route: 065

REACTIONS (3)
  - Angioedema [Unknown]
  - Drug interaction [Unknown]
  - Diarrhoea [Unknown]
